FAERS Safety Report 5863849-4 (Version None)
Quarter: 2008Q3

REPORT INFORMATION
  Report Type: 
  Country: None (occurrence: None)
  Receive Date: 20080827
  Receipt Date: 20080815
  Transmission Date: 20090109
  Serious: Yes (Hospitalization)
  Sender: FDA-Public Use
  Company Number: 2008-01537

PATIENT
  Age: 60 Year
  Sex: Male
  Weight: 93.2 kg

DRUGS (6)
  1. VELCADE [Suspect]
     Indication: NON-HODGKIN'S LYMPHOMA
     Dosage: 1.5 MG/M2, INTRAVENOUS
     Route: 042
     Dates: start: 20071229, end: 20080107
  2. RITUXIMAB(RITUXIMAB) INJECTION, 375MG/M2 [Suspect]
     Indication: NON-HODGKIN'S LYMPHOMA
  3. CARMUSTINE [Suspect]
     Indication: NON-HODGKIN'S LYMPHOMA
     Dosage: 650 MG, INTRAVENOUS
     Route: 042
     Dates: start: 20080103, end: 20080103
  4. ETOPOSIDE [Suspect]
     Indication: NON-HODGKIN'S LYMPHOMA
     Dosage: 216 MG, INTRAVENOUS
     Route: 042
     Dates: start: 20080104, end: 20080407
  5. CYTARABINE [Suspect]
     Indication: NON-HODGKIN'S LYMPHOMA
     Dosage: 216 MG, INTRAVENOUS
     Route: 042
     Dates: start: 20080104, end: 20080107
  6. MELPHALAN(MELPHALAN) VIAL [Suspect]
     Indication: NON-HODGKIN'S LYMPHOMA
     Dosage: 300 MG, INTERAVENOUS
     Route: 042
     Dates: start: 20080108, end: 20080108

REACTIONS (12)
  - ATELECTASIS [None]
  - BLOOD PRESSURE SYSTOLIC DECREASED [None]
  - COMPUTERISED TOMOGRAM ABNORMAL [None]
  - HYPOPERFUSION [None]
  - ILEUS PARALYTIC [None]
  - LIVER DISORDER [None]
  - NEUTROPENIA [None]
  - PNEUMONIA [None]
  - RENAL TUBULAR NECROSIS [None]
  - SEPSIS SYNDROME [None]
  - SPONDYLOLYSIS [None]
  - THROMBOCYTOPENIA [None]
